FAERS Safety Report 8296277 (Version 3)
Quarter: 2012Q4

REPORT INFORMATION
  Report Type: Report from Study
  Country: JP (occurrence: JP)
  Receive Date: 20111216
  Receipt Date: 20120926
  Transmission Date: 20130627
  Serious: Yes (Other)
  Sender: FDA-Public Use
  Company Number: JP-JNJFOC-20111204611

PATIENT
  Age: 35 Year
  Sex: Male

DRUGS (4)
  1. STELARA [Suspect]
     Indication: PSORIASIS
     Route: 058
     Dates: start: 20110906
  2. TAVEGYL [Suspect]
     Indication: PRODUCT USED FOR UNKNOWN INDICATION
     Route: 048
     Dates: start: 20111101
  3. ZYRTEC [Concomitant]
     Indication: PRODUCT USED FOR UNKNOWN INDICATION
     Route: 048
     Dates: start: 201111
  4. ALLELOCK [Concomitant]
     Route: 048
     Dates: start: 201103

REACTIONS (3)
  - Neurodermatitis [Recovering/Resolving]
  - Rash generalised [Recovering/Resolving]
  - Eosinophil count increased [Unknown]
